FAERS Safety Report 9025428 (Version 2)
Quarter: 2013Q1

REPORT INFORMATION
  Report Type: Spontaneous
  Country: JP (occurrence: JP)
  Receive Date: 20130122
  Receipt Date: 20130218
  Transmission Date: 20140127
  Serious: Yes (Death, Hospitalization)
  Sender: FDA-Public Use
  Company Number: JP-AMGEN-JPNSP2013003734

PATIENT
  Age: 77 Year
  Sex: Male
  Weight: 60 kg

DRUGS (11)
  1. VECTIBIX [Suspect]
     Indication: COLON CANCER
     Dosage: 340 MG, Q2WK
     Route: 041
     Dates: start: 20120706, end: 20121228
  2. OXALIPLATIN [Suspect]
     Indication: COLON CANCER
     Dosage: 70 MG, Q2WK
     Route: 041
     Dates: start: 20120607, end: 20121228
  3. 5 FU [Suspect]
     Indication: COLON CANCER
     Dosage: 2500 MG, Q2WK
     Route: 041
     Dates: start: 20120607, end: 20121228
  4. MINOMYCIN [Suspect]
     Indication: PROPHYLAXIS
     Dosage: 100 MG, BID
     Route: 048
     Dates: start: 20120907, end: 20121228
  5. CALCIUM LEVOFOLINATE [Concomitant]
     Indication: COLON CANCER
     Dosage: 200 MG, Q2WK
     Route: 041
     Dates: start: 20120607, end: 20121228
  6. FERRUM                             /00023505/ [Concomitant]
     Dosage: UNK
     Route: 048
  7. CEPHARANTHIN [Concomitant]
     Dosage: UNK
     Route: 048
  8. MAGMITT [Concomitant]
     Dosage: UNK
     Route: 048
  9. VENCOLL [Concomitant]
     Dosage: UNK
     Route: 048
  10. CORTICOSTEROIDS [Concomitant]
     Dosage: UNK
     Route: 062
  11. EMOLLIENTS AND PROTECTIVES [Concomitant]
     Dosage: UNK
     Route: 065

REACTIONS (1)
  - Interstitial lung disease [Fatal]
